FAERS Safety Report 19901342 (Version 1)
Quarter: 2021Q3

REPORT INFORMATION
  Report Type: Spontaneous
  Country: US (occurrence: US)
  Receive Date: 20210930
  Receipt Date: 20210930
  Transmission Date: 20211014
  Serious: No
  Sender: FDA-Public Use
  Company Number: None

PATIENT
  Sex: Female

DRUGS (11)
  1. LASIX [Concomitant]
     Active Substance: FUROSEMIDE
  2. AMLODIPINE BESYLATE/BENAZ [Concomitant]
  3. ADCIRCA [Concomitant]
     Active Substance: TADALAFIL
  4. MULTIVITAMIN ADULT [Concomitant]
  5. METHADONE HYDROCHLORIDE. [Concomitant]
     Active Substance: METHADONE HYDROCHLORIDE
  6. BIOTIN 5000 [Concomitant]
  7. AMBRISENTAN [Suspect]
     Active Substance: AMBRISENTAN
     Indication: PULMONARY HYPERTENSION
     Route: 048
  8. POTASSIUM/MAGNESIUM ASPAR [Concomitant]
  9. OXYCODONE HYDROCHLORIDE. [Concomitant]
     Active Substance: OXYCODONE HYDROCHLORIDE
  10. OMEPRAZOLE. [Concomitant]
     Active Substance: OMEPRAZOLE
  11. IRON [Concomitant]
     Active Substance: IRON

REACTIONS (1)
  - Intentional dose omission [None]
